FAERS Safety Report 25672957 (Version 2)
Quarter: 2025Q3

REPORT INFORMATION
  Report Type: Spontaneous
  Country: CN (occurrence: CN)
  Receive Date: 20250812
  Receipt Date: 20250925
  Transmission Date: 20251020
  Serious: Yes (Hospitalization)
  Sender: ALEXION PHARMACEUTICALS
  Company Number: CN-ASTRAZENECA-202508CHN006372CN

PATIENT
  Age: 41 Year
  Sex: Female
  Weight: 51.9 kg

DRUGS (5)
  1. FASLODEX [Suspect]
     Active Substance: FULVESTRANT
     Indication: Breast cancer
     Dates: start: 20250721, end: 20250804
  2. FASLODEX [Suspect]
     Active Substance: FULVESTRANT
  3. TRUQAP [Suspect]
     Active Substance: CAPIVASERTIB
     Indication: Breast cancer
     Dosage: 400 MILLIGRAM, BID
     Dates: start: 20250721, end: 20250806
  4. TRUQAP [Suspect]
     Active Substance: CAPIVASERTIB
     Dosage: 300 MILLIGRAM, BID
     Dates: start: 20250804
  5. CLARITHROMYCIN [Concomitant]
     Active Substance: CLARITHROMYCIN
     Route: 065

REACTIONS (5)
  - Blood glucose increased [Recovering/Resolving]
  - Nausea [Unknown]
  - Vomiting [Unknown]
  - Limb deformity [Unknown]
  - Diarrhoea [Unknown]

NARRATIVE: CASE EVENT DATE: 20250806
